FAERS Safety Report 5195067-X (Version None)
Quarter: 2006Q4

REPORT INFORMATION
  Report Type: 
  Country: None (occurrence: None)
  Receive Date: 20061229
  Receipt Date: 20061225
  Transmission Date: 20070319
  Serious: Yes (Other)
  Sender: FDA-Public Use
  Company Number: US-JNJFOC-20061206702

PATIENT
  Age: 7 Year
  Sex: Male
  Weight: 36.29 kg

DRUGS (3)
  1. TYLENOL (CAPLET) [Suspect]
  2. TYLENOL (CAPLET) [Suspect]
     Indication: ARTHRALGIA
  3. EMETROL [Concomitant]

REACTIONS (4)
  - DYSARTHRIA [None]
  - HEMIPARESIS [None]
  - LETHARGY [None]
  - VOMITING [None]
